FAERS Safety Report 24644592 (Version 1)
Quarter: 2024Q4

REPORT INFORMATION
  Report Type: Spontaneous
  Country: KR (occurrence: KR)
  Receive Date: 20241121
  Receipt Date: 20241121
  Transmission Date: 20250115
  Serious: Yes (Other)
  Sender: Kenvue
  Company Number: KR-UCBSA-2024058864

PATIENT

DRUGS (1)
  1. CETIRIZINE HYDROCHLORIDE [Suspect]
     Active Substance: CETIRIZINE HYDROCHLORIDE
     Indication: Evidence based treatment
     Dosage: 1 DOSAGE FORM, ONCE DAILY (QD)
     Route: 065
     Dates: start: 20000103, end: 20000103

REACTIONS (2)
  - Loss of consciousness [Recovered/Resolved]
  - Product use in unapproved indication [Unknown]

NARRATIVE: CASE EVENT DATE: 20000103
